FAERS Safety Report 16240424 (Version 1)
Quarter: 2019Q2

REPORT INFORMATION
  Report Type: Spontaneous
  Country: US (occurrence: US)
  Receive Date: 20190425
  Receipt Date: 20190425
  Transmission Date: 20190711
  Serious: No
  Sender: FDA-Public Use
  Company Number: US-GLAXOSMITHKLINE-US2019071510

PATIENT
  Age: 74 Year
  Sex: Female

DRUGS (1)
  1. FLONASE [Suspect]
     Active Substance: FLUTICASONE PROPIONATE
     Indication: RHINORRHOEA
     Dosage: UNK UNK, QD
     Dates: start: 2017, end: 20190416

REACTIONS (2)
  - Incorrect product administration duration [Unknown]
  - Headache [Unknown]
